FAERS Safety Report 18009496 (Version 3)
Quarter: 2020Q3

REPORT INFORMATION
  Report Type: Spontaneous
  Country: US (occurrence: US)
  Receive Date: 20200710
  Receipt Date: 20200826
  Transmission Date: 20201103
  Serious: Yes (Death, Other)
  Sender: FDA-Public Use
  Company Number: US-GILEAD-2020-0481284

PATIENT
  Age: 51 Year
  Sex: Female
  Weight: 103.6 kg

DRUGS (9)
  1. REMDESIVIR. [Suspect]
     Active Substance: REMDESIVIR
     Indication: COVID-19
     Dosage: 100 MG, QD
     Route: 065
     Dates: start: 20200626, end: 20200705
  2. TOCILIZUMAB. [Concomitant]
     Active Substance: TOCILIZUMAB
  3. PROPOFOL. [Concomitant]
     Active Substance: PROPOFOL
  4. ZOSYN [Concomitant]
     Active Substance: PIPERACILLIN SODIUM\TAZOBACTAM SODIUM
  5. NOREPINEPHRINE. [Concomitant]
     Active Substance: NOREPINEPHRINE
  6. VASOPRESSIN. [Concomitant]
     Active Substance: VASOPRESSIN
  7. DEXAMETHASONE. [Concomitant]
     Active Substance: DEXAMETHASONE
  8. ENOXAPARIN [Concomitant]
     Active Substance: ENOXAPARIN
  9. FENTANYL. [Concomitant]
     Active Substance: FENTANYL

REACTIONS (2)
  - Hypoxia [Fatal]
  - Pulseless electrical activity [Fatal]

NARRATIVE: CASE EVENT DATE: 20200707
